FAERS Safety Report 9422318 (Version 2)
Quarter: 2013Q3

REPORT INFORMATION
  Report Type: Spontaneous
  Country: US (occurrence: US)
  Receive Date: 20130726
  Receipt Date: 20130730
  Transmission Date: 20140515
  Serious: Yes (Other)
  Sender: FDA-Public Use
  Company Number: US-009507513-1307USA013129

PATIENT
  Age: 74 Year
  Sex: Female

DRUGS (3)
  1. JANUMET [Suspect]
     Indication: GLYCOSYLATED HAEMOGLOBIN INCREASED
     Dosage: 50 MG-500 MG, 1 STANDARD PACKAGE BOTTLE OF 60
     Route: 048
  2. JANUMET [Suspect]
     Dosage: 1 UNK, UNK
     Route: 048
  3. RECLAST [Concomitant]
     Dosage: UNK

REACTIONS (2)
  - Renal failure acute [Recovered/Resolved]
  - Renal failure [Recovered/Resolved]
